FAERS Safety Report 12801916 (Version 1)
Quarter: 2016Q4

REPORT INFORMATION
  Report Type: Spontaneous
  Country: DE (occurrence: DE)
  Receive Date: 20161003
  Receipt Date: 20161003
  Transmission Date: 20170207
  Serious: Yes (Other)
  Sender: FDA-Public Use
  Company Number: DE-SUN PHARMACEUTICAL INDUSTRIES LTD-2016RR-124808

PATIENT
  Age: 45 Year
  Sex: Female
  Weight: 62 kg

DRUGS (1)
  1. OXALIPLATIN. [Suspect]
     Active Substance: OXALIPLATIN
     Indication: COLON CANCER
     Dosage: 108 MG, UNK
     Route: 065
     Dates: start: 20160907

REACTIONS (6)
  - Suffocation feeling [Recovered/Resolved]
  - Hypersensitivity [Recovered/Resolved]
  - Pulse abnormal [Recovered/Resolved]
  - Flushing [Recovered/Resolved]
  - Swollen tongue [Recovered/Resolved]
  - Peripheral swelling [Recovered/Resolved]

NARRATIVE: CASE EVENT DATE: 20160907
